FAERS Safety Report 21725158 (Version 4)
Quarter: 2024Q1

REPORT INFORMATION
  Report Type: Spontaneous
  Country: NL (occurrence: NL)
  Receive Date: 20221214
  Receipt Date: 20240227
  Transmission Date: 20240410
  Serious: Yes (Life-Threatening, Hospitalization, Other)
  Sender: FDA-Public Use
  Company Number: NL-SYNTHON BV-IN51PV22_66934

PATIENT
  Sex: Female
  Weight: 96 kg

DRUGS (7)
  1. AZITHROMYCIN [Suspect]
     Active Substance: AZITHROMYCIN
     Indication: Oropharyngeal pain
     Dosage: 500 MILLIGRAM, ONCE A DAY (250 MILLIGRAM, UNK UNK, BID, 2 X DAILY)
     Route: 065
     Dates: start: 20220820, end: 20220827
  2. CLOZAPINE [Suspect]
     Active Substance: CLOZAPINE
     Indication: Antipsychotic therapy
     Dosage: 100 MILLIGRAM (100 MG 1 X PER DAY 1.5 PIECE)
     Route: 065
     Dates: start: 20080101, end: 20220831
  3. CLOZAPINE [Suspect]
     Active Substance: CLOZAPINE
     Indication: Psychotic disorder
  4. FLUCONAZOLE [Suspect]
     Active Substance: FLUCONAZOLE
     Indication: Fungal infection
     Dosage: 50 MILLIGRAM (50 MILLIGRAM 1 X PER DAY 2; UNK)
     Route: 065
     Dates: start: 20220822
  5. FLUCONAZOLE [Suspect]
     Active Substance: FLUCONAZOLE
     Dosage: 100 MILLIGRAM, QD,1 X PER DAY 2
     Route: 065
     Dates: start: 20220822
  6. METAMIZOLE [Suspect]
     Active Substance: METAMIZOLE
     Indication: Pain
     Dosage: 500 MILLIGRAM (500 MILLIGRAM 4X PER DAY 2; UNK)
     Route: 065
     Dates: start: 20220617, end: 20220831
  7. METAMIZOLE [Suspect]
     Active Substance: METAMIZOLE
     Dosage: 1000 MILLIGRAM, Q6H,4X PER DAY 2
     Route: 065
     Dates: start: 20220617, end: 20220831

REACTIONS (1)
  - Agranulocytosis [Recovered/Resolved]
